FAERS Safety Report 21939216 (Version 1)
Quarter: 2023Q1

REPORT INFORMATION
  Report Type: Report from Study
  Country: US (occurrence: US)
  Receive Date: 20230201
  Receipt Date: 20230201
  Transmission Date: 20230418
  Serious: Yes (Death)
  Sender: FDA-Public Use
  Company Number: US-EXELIXIS-CABO-22055649

PATIENT
  Sex: Male

DRUGS (3)
  1. CABOMETYX [Suspect]
     Active Substance: CABOZANTINIB S-MALATE
     Indication: Osteosarcoma metastatic
     Dosage: 40 MG, QD
     Route: 048
     Dates: start: 20220622
  2. LIDODERM [Concomitant]
     Active Substance: LIDOCAINE
  3. OXYCODONE [Concomitant]
     Active Substance: OXYCODONE

REACTIONS (4)
  - Metastases to lung [Fatal]
  - Metastases to central nervous system [Fatal]
  - Malaise [Unknown]
  - Off label use [Unknown]
